FAERS Safety Report 17441521 (Version 3)
Quarter: 2020Q2

REPORT INFORMATION
  Report Type: Report from Study
  Country: None (occurrence: US)
  Receive Date: 20200220
  Receipt Date: 20200505
  Transmission Date: 20200713
  Serious: Yes (Hospitalization, Other)
  Sender: FDA-Public Use
  Company Number: US-ABBVIE-20P-163-3284474-00

PATIENT
  Age: 33 Year
  Sex: Female
  Weight: 66.74 kg

DRUGS (2)
  1. RINVOQ [Suspect]
     Active Substance: UPADACITINIB
     Indication: RHEUMATOID ARTHRITIS
     Route: 048
     Dates: start: 201911, end: 20200206
  2. RINVOQ [Suspect]
     Active Substance: UPADACITINIB
     Route: 048
     Dates: start: 202003

REACTIONS (11)
  - Pain [Recovering/Resolving]
  - Urinary retention [Unknown]
  - Malaise [Recovered/Resolved]
  - Urinary tract infection [Unknown]
  - White blood cell count increased [Recovered/Resolved]
  - Kidney infection [Recovered/Resolved]
  - Dehydration [Unknown]
  - Purulence [Recovered/Resolved]
  - Feeling abnormal [Unknown]
  - Ureteral stent insertion [Unknown]
  - Nephrolithiasis [Recovered/Resolved]

NARRATIVE: CASE EVENT DATE: 202002
